FAERS Safety Report 16999607 (Version 1)
Quarter: 2019Q4

REPORT INFORMATION
  Report Type: Spontaneous
  Country: IT (occurrence: IT)
  Receive Date: 20191105
  Receipt Date: 20191105
  Transmission Date: 20200122
  Serious: Yes (Other)
  Sender: FDA-Public Use
  Company Number: IT-BAXTER-2019BAX022324

PATIENT
  Age: 49 Year
  Sex: Male

DRUGS (4)
  1. DOXIL [Suspect]
     Active Substance: DOXORUBICIN HYDROCHLORIDE
     Indication: NON-HODGKIN^S LYMPHOMA
     Dosage: CYCLICAL
     Route: 042
     Dates: start: 20190909, end: 20190920
  2. ETOPOSIDE. [Suspect]
     Active Substance: ETOPOSIDE
     Indication: NON-HODGKIN^S LYMPHOMA
     Dosage: CYCLICAL (CONCENTRATE FOR SOLUTION FOR INJECTION/INFUSION)
     Route: 042
     Dates: start: 20190909, end: 20190920
  3. ENDOXAN BAXTER [Suspect]
     Active Substance: CYCLOPHOSPHAMIDE
     Indication: NON-HODGKIN^S LYMPHOMA
     Dosage: CYCLICAL (CONCENTRATE FOR SOLUTION FOR INJECTION/INFUSION)
     Route: 042
     Dates: start: 20190909, end: 20190920
  4. VINCRISTINE [Suspect]
     Active Substance: VINCRISTINE
     Indication: NON-HODGKIN^S LYMPHOMA
     Dosage: CYCLICAL (CONCENTRATE FOR SOLUTION FOR INJECTION/INFUSION)
     Route: 042
     Dates: start: 20190909, end: 20190920

REACTIONS (2)
  - Neutropenia [Recovered/Resolved]
  - Leukopenia [Recovered/Resolved]

NARRATIVE: CASE EVENT DATE: 20191011
